FAERS Safety Report 6284493-3 (Version None)
Quarter: 2009Q3

REPORT INFORMATION
  Report Type: 
  Country: None (occurrence: None)
  Receive Date: 20090727
  Receipt Date: 20090721
  Transmission Date: 20100115
  Serious: Yes (Death, Other)
  Sender: FDA-Public Use
  Company Number: US-AMGEN-US336326

PATIENT
  Sex: Male
  Weight: 79.7 kg

DRUGS (8)
  1. NPLATE [Suspect]
     Indication: LYMPHOMA
     Dates: start: 20080930, end: 20081202
  2. BACTRIM DS [Suspect]
     Route: 048
  3. OXYCODONE [Concomitant]
     Route: 048
  4. ZOLPIDEM [Concomitant]
     Route: 048
  5. RED BLOOD CELLS [Concomitant]
  6. TUSSIONEX [Concomitant]
     Route: 048
  7. OXYCONTIN [Concomitant]
     Route: 048
  8. GEODON [Concomitant]

REACTIONS (2)
  - BONE MARROW DISORDER [None]
  - DRUG INEFFECTIVE [None]
